FAERS Safety Report 23703273 (Version 1)
Quarter: 2024Q2

REPORT INFORMATION
  Report Type: Spontaneous
  Country: US (occurrence: None)
  Receive Date: 20240403
  Receipt Date: 20240403
  Transmission Date: 20240716
  Serious: Yes (Hospitalization)
  Sender: FDA-Public Use
  Company Number: None

PATIENT
  Sex: Male

DRUGS (1)
  1. XDEMVY [Suspect]
     Active Substance: LOTILANER
     Dosage: FREQ: INSTILL 1 DROP INTO BOTH EYES TWICE DAILY?
     Route: 047

REACTIONS (2)
  - Hospitalisation [None]
  - Therapy interrupted [None]
